FAERS Safety Report 5189611-6 (Version None)
Quarter: 2006Q4

REPORT INFORMATION
  Report Type: 
  Country: None (occurrence: None)
  Receive Date: 20061215
  Receipt Date: 20061128
  Transmission Date: 20070319
  Serious: Yes (Death, Hospitalization, Other)
  Sender: FDA-Public Use
  Company Number: 2006149435

PATIENT
  Sex: Male

DRUGS (3)
  1. CELEBREX [Suspect]
     Dosage: ORAL
     Route: 048
     Dates: start: 19990101, end: 20030819
  2. BEXTRA [Suspect]
     Dosage: ORAL
     Route: 048
     Dates: start: 20011101, end: 20030819
  3. VIOXX [Suspect]
     Dosage: ORAL
     Route: 048
     Dates: start: 19990601, end: 20030819

REACTIONS (3)
  - CARDIAC FAILURE CONGESTIVE [None]
  - INJURY [None]
  - MYOCARDIAL INFARCTION [None]
